FAERS Safety Report 24148902 (Version 1)
Quarter: 2024Q3

REPORT INFORMATION
  Report Type: Spontaneous
  Country: JP (occurrence: JP)
  Receive Date: 20240729
  Receipt Date: 20240729
  Transmission Date: 20241017
  Serious: Yes (Death, Hospitalization, Other)
  Sender: PFIZER
  Company Number: JP-PFIZER INC-202400224462

PATIENT
  Age: 25 Year

DRUGS (3)
  1. SOLU-CORTEF [Suspect]
     Active Substance: HYDROCORTISONE SODIUM SUCCINATE
     Indication: Leukaemia in remission
  2. METHOTREXATE [Concomitant]
     Active Substance: METHOTREXATE
  3. CYTARABINE [Concomitant]
     Active Substance: CYTARABINE

REACTIONS (15)
  - Fungal infection [Fatal]
  - Mucormycosis [Fatal]
  - Infection [Fatal]
  - Staphylococcal sepsis [Unknown]
  - Disseminated intravascular coagulation [Unknown]
  - Encephalopathy [Unknown]
  - Pneumonia [Unknown]
  - Gastrointestinal perforation [Unknown]
  - Glaucoma [Unknown]
  - Overdose [Unknown]
  - Gait inability [Unknown]
  - General physical health deterioration [Unknown]
  - Abdominal pain [Unknown]
  - Off label use [Unknown]
  - Off label use [Unknown]
